FAERS Safety Report 8458425 (Version 2)
Quarter: 2013Q2

REPORT INFORMATION
  Report Type: Spontaneous
  Country: US (occurrence: None)
  Receive Date: 20120227
  Receipt Date: 20120525
  Transmission Date: 20140414
  Serious: Yes (Hospitalization)
  Sender: FDA-Public Use
  Company Number: 342910

PATIENT
  Age: 65 Year
  Sex: Male
  Weight: 128.3 kg

DRUGS (11)
  1. VICTOZA [Suspect]
     Indication: TYPE 2 DIABETES MELLITUS
     Route: 058
     Dates: end: 20111225
  2. METFORMIN HYDROCHLORIDE [Concomitant]
  3. TRICOR /00090101/ (ADENOSINE) [Concomitant]
  4. ACTOS (PIOGLITAZONE HYDROCHLORIDE) [Concomitant]
  5. ASPIRIN (ACETYLSALICYLIC ACID) [Concomitant]
  6. ATENOLOL (ATENOLOL) [Concomitant]
  7. DOXAZOSIN MESYLATE (DOXAZOSIN MESILATE) [Concomitant]
  8. GLIPIZIDE (GLIPIZIDE) [Concomitant]
  9. LIPITOR (ATORVASTATIN CALCIUM) [Concomitant]
  10. LISINOPRIL HCTZ (HYDROCHLOROTHIAZIDE, LISINOPRIL) [Concomitant]
  11. LYRICA (PREGABALIN) [Concomitant]

REACTIONS (1)
  - PANCREATITIS ACUTE [None]
